FAERS Safety Report 9684909 (Version 2)
Quarter: 2015Q1

REPORT INFORMATION
  Report Type: Report from Study
  Country: US (occurrence: US)
  Receive Date: 20131113
  Receipt Date: 20150226
  Transmission Date: 20150721
  Serious: Yes (Death)
  Sender: FDA-Public Use
  Company Number: US-ROCHE-1303314

PATIENT
  Sex: Male

DRUGS (16)
  1. NACL .9% [Concomitant]
     Route: 065
  2. DEMEROL [Concomitant]
     Active Substance: MEPERIDINE HYDROCHLORIDE
     Route: 030
  3. TORISEL [Concomitant]
     Active Substance: TEMSIROLIMUS
     Route: 042
  4. DEXAMETHASONE. [Concomitant]
     Active Substance: DEXAMETHASONE
  5. BENADRYL [Concomitant]
     Active Substance: DIPHENHYDRAMINE HYDROCHLORIDE
     Route: 042
  6. AVASTIN [Suspect]
     Active Substance: BEVACIZUMAB
     Dosage: 10/JUN/2010, 24/JUN/2010, 08/JUL/2010, 23/JUL/2010, 05/AUG/2010 AND 20/AUG/2010
     Route: 042
  7. AVASTIN [Suspect]
     Active Substance: BEVACIZUMAB
     Dosage: ON 02/SEP/2010, 17/SEP/2010, 17/JAN/2011 AND 31/JAN/2011
     Route: 042
  8. ZOFRAN [Concomitant]
     Active Substance: ONDANSETRON HYDROCHLORIDE
     Route: 040
  9. DEMEROL [Concomitant]
     Active Substance: MEPERIDINE HYDROCHLORIDE
     Route: 065
  10. TYLENOL [Concomitant]
     Active Substance: ACETAMINOPHEN
     Route: 048
  11. AVASTIN [Suspect]
     Active Substance: BEVACIZUMAB
     Indication: RENAL CANCER
     Dosage: ON 28/MAY/2010.
     Route: 042
     Dates: start: 20100510
  12. AVASTIN [Suspect]
     Active Substance: BEVACIZUMAB
     Dosage: ON 14/FEB/2011
     Route: 042
  13. INTERFERON ALFA-2B [Concomitant]
     Active Substance: INTERFERON ALFA-2B
     Route: 058
  14. DECADRON [Concomitant]
     Active Substance: DEXAMETHASONE
     Route: 065
     Dates: start: 20100510
  15. TORISEL [Concomitant]
     Active Substance: TEMSIROLIMUS
     Route: 042
  16. INTERFERON ALFA-2A [Concomitant]
     Active Substance: INTERFERON ALFA-2A

REACTIONS (2)
  - Off label use [Unknown]
  - Death [Fatal]
